FAERS Safety Report 10067636 (Version 3)
Quarter: 2014Q3

REPORT INFORMATION
  Report Type: Spontaneous
  Country: US (occurrence: None)
  Receive Date: 20140407
  Receipt Date: 20140702
  Transmission Date: 20150326
  Serious: Yes (Other)
  Sender: FDA-Public Use
  Company Number: 2014-US-003816

PATIENT
  Age: 66 Year
  Sex: Male
  Weight: 121.1 kg

DRUGS (12)
  1. XYREM [Suspect]
     Active Substance: SODIUM OXYBATE
     Indication: NARCOLEPSY
     Route: 048
     Dates: start: 200508
  2. OPANA [Concomitant]
     Active Substance: OXYMORPHONE HYDROCHLORIDE
  3. CYMBALTA [Concomitant]
     Active Substance: DULOXETINE HYDROCHLORIDE
  4. ANTIBIOTICS [Suspect]
     Active Substance: UNSPECIFIED INGREDIENT
     Indication: TOOTH INFECTION
  5. BENICAR [Concomitant]
     Active Substance: OLMESARTAN MEDOXOMIL
  6. NIFEDICAL (NIFEDIPINE) [Concomitant]
  7. CLONAZEPAM (CLONAZEPAM) [Concomitant]
  8. LORAZEPAM (LORAZEPAM) [Concomitant]
     Active Substance: LORAZEPAM
  9. EXALGO (HYDROMORPHONE) HYDROCHLORIDE) [Concomitant]
  10. ZOFRAN (ONDANSETRON HYDROCHLORIDE) [Concomitant]
  11. METHOCARBAMOL (METHOCARBAMOL) [Concomitant]
  12. ACTIQ [Suspect]
     Active Substance: FENTANYL CITRATE
     Indication: PRODUCT USED FOR UNKNOWN INDICATION

REACTIONS (14)
  - Spinal operation [None]
  - Dental caries [None]
  - Cervical spinal stenosis [None]
  - Tooth infection [None]
  - Drug ineffective [None]
  - Confusional state [None]
  - Adverse event [None]
  - Abdominal pain upper [None]
  - Dental operation [None]
  - Condition aggravated [None]
  - Discomfort [None]
  - Pain in extremity [None]
  - Paraesthesia [None]
  - Dental prosthesis placement [None]

NARRATIVE: CASE EVENT DATE: 20130908
